FAERS Safety Report 8891232 (Version 1)
Quarter: 2012Q4

REPORT INFORMATION
  Report Type: 
  Country: DK (occurrence: GB)
  Receive Date: 20121107
  Receipt Date: 20121107
  Transmission Date: 20130627
  Serious: Yes (Death)
  Sender: FDA-Public Use
  Company Number: GB-FRI-1000040174

PATIENT
  Age: 69 Year
  Sex: Female
  Weight: 80 kg

DRUGS (6)
  1. CITALOPRAM [Suspect]
     Dosage: 30 mg
     Route: 048
  2. CITALOPRAM [Suspect]
     Dosage: 10 mg
     Route: 048
  3. ATIVAN [Suspect]
  4. DIAZEPAM [Suspect]
  5. NITRAZEPAM [Suspect]
     Dosage: 5 mg
  6. REMINYL ER [Suspect]
     Dosage: 16 mg

REACTIONS (4)
  - Catatonia [Fatal]
  - Withdrawal syndrome [Fatal]
  - Drug interaction [Fatal]
  - Accidental overdose [Fatal]
